FAERS Safety Report 21062167 (Version 1)
Quarter: 2022Q3

REPORT INFORMATION
  Report Type: Spontaneous
  Country: NL (occurrence: NL)
  Receive Date: 20220711
  Receipt Date: 20220711
  Transmission Date: 20221026
  Serious: Yes (Other)
  Sender: FDA-Public Use
  Company Number: NL-ABBVIE-22K-114-4447278-00

PATIENT
  Age: 59 Year
  Sex: Female

DRUGS (4)
  1. AZACITIDINE [Suspect]
     Active Substance: AZACITIDINE
     Indication: Acute myeloid leukaemia
     Route: 065
     Dates: start: 2022, end: 202206
  2. VENETOCLAX [Suspect]
     Active Substance: VENETOCLAX
     Indication: Acute myeloid leukaemia
     Dates: start: 2022
  3. VENETOCLAX [Suspect]
     Active Substance: VENETOCLAX
  4. VENETOCLAX [Suspect]
     Active Substance: VENETOCLAX
     Dates: end: 202206

REACTIONS (3)
  - Acute biphenotypic leukaemia [Not Recovered/Not Resolved]
  - Acute myeloid leukaemia recurrent [Unknown]
  - Acute myeloid leukaemia refractory [Not Recovered/Not Resolved]

NARRATIVE: CASE EVENT DATE: 20220105
